FAERS Safety Report 7124620-9 (Version None)
Quarter: 2010Q4

REPORT INFORMATION
  Report Type: 
  Country: None (occurrence: None)
  Receive Date: 20101122
  Receipt Date: 20101122
  Transmission Date: 20110411
  Serious: Yes (Other)
  Sender: FDA-Public Use
  Company Number: None

PATIENT
  Sex: Female
  Weight: 90.7194 kg

DRUGS (2)
  1. LYRICA [Suspect]
     Indication: FIBROMYALGIA
     Dosage: 1 BY MOUTH TWICE DAILY
     Route: 048
     Dates: start: 20100909, end: 20101113
  2. LYRICA [Suspect]
     Indication: NEURALGIA
     Dosage: 1 BY MOUTH TWICE DAILY
     Route: 048
     Dates: start: 20100909, end: 20101113

REACTIONS (1)
  - MUSCLE SPASMS [None]
